FAERS Safety Report 8571607-5 (Version None)
Quarter: 2012Q2

REPORT INFORMATION
  Report Type: 
  Country: None (occurrence: None)
  Receive Date: 20120418
  Receipt Date: 20090520
  Transmission Date: 20120825
  Serious: Yes (Other)
  Sender: FDA-Public Use
  Company Number: PHEH2009US04324

PATIENT
  Age: 43 Year
  Sex: Female
  Weight: 98 kg

DRUGS (10)
  1. METOPROLOL TARTRATE [Concomitant]
  2. CELEXA [Concomitant]
  3. SKELAXIN [Concomitant]
  4. DIOVAN HCT [Suspect]
     Dosage: 160/12.5MG QD, ORAL
     Route: 048
     Dates: start: 20080717, end: 20090318
  5. ZANTAC [Concomitant]
  6. XANAX [Concomitant]
  7. DARVOCET-N (DEXTROPROPOXYPHENE NAPSILATE, PARACETAMOL) [Concomitant]
  8. CLONIDINE [Concomitant]
  9. SOMA [Concomitant]
  10. ASPIRIN [Concomitant]

REACTIONS (3)
  - HYPOCHLORAEMIA [None]
  - HYPONATRAEMIA [None]
  - HEPATIC ENZYME INCREASED [None]
